FAERS Safety Report 5865997-1 (Version None)
Quarter: 2008Q3

REPORT INFORMATION
  Report Type: 
  Country: None (occurrence: None)
  Receive Date: 20080829
  Receipt Date: 20080819
  Transmission Date: 20090109
  Serious: Yes (Hospitalization, Other)
  Sender: FDA-Public Use
  Company Number: US-PFIZER INC-2008055984

PATIENT
  Sex: Male
  Weight: 71.7 kg

DRUGS (7)
  1. LYRICA [Suspect]
     Indication: ARTHRALGIA
     Route: 048
     Dates: start: 20080408, end: 20080101
  2. LYRICA [Suspect]
     Indication: PAIN IN EXTREMITY
  3. FENTANYL-25 [Concomitant]
  4. VYTORIN [Concomitant]
     Route: 048
  5. CARDIZEM CD [Concomitant]
     Route: 048
  6. TOPROL-XL [Concomitant]
  7. WARFARIN SODIUM [Concomitant]

REACTIONS (5)
  - ABASIA [None]
  - FAECAL INCONTINENCE [None]
  - FATIGUE [None]
  - RENAL FAILURE ACUTE [None]
  - SOMNOLENCE [None]
